FAERS Safety Report 10090003 (Version 1)
Quarter: 2014Q2

REPORT INFORMATION
  Report Type: Spontaneous
  Country: US (occurrence: US)
  Receive Date: 20140421
  Receipt Date: 20140421
  Transmission Date: 20141212
  Serious: No
  Sender: FDA-Public Use
  Company Number: US-009507513-1404USA008621

PATIENT
  Sex: Female

DRUGS (2)
  1. COZAAR [Suspect]
     Dosage: 50 MG, BID
     Route: 048
  2. COZAAR [Suspect]
     Dosage: 100 MG, QD
     Route: 048

REACTIONS (2)
  - Nausea [Recovered/Resolved]
  - Nausea [Unknown]
